FAERS Safety Report 24171754 (Version 1)
Quarter: 2024Q3

REPORT INFORMATION
  Report Type: Spontaneous
  Country: US (occurrence: None)
  Receive Date: 20240805
  Receipt Date: 20240805
  Transmission Date: 20241017
  Serious: No
  Sender: BENUVIA THERAPEUTICS
  Company Number: US-Benuvia Operations LLC.-BEN202406-000007

PATIENT

DRUGS (1)
  1. SYNDROS [Suspect]
     Active Substance: DRONABINOL
     Indication: Product used for unknown indication
     Dosage: UNKNOWN

REACTIONS (2)
  - Vomiting [Unknown]
  - Wrong technique in product usage process [Unknown]
